FAERS Safety Report 7702452-8 (Version None)
Quarter: 2011Q3

REPORT INFORMATION
  Report Type: 
  Country: None (occurrence: None)
  Receive Date: 20110823
  Receipt Date: 20110817
  Transmission Date: 20111222
  Serious: Yes (Other)
  Sender: FDA-Public Use
  Company Number: JP-BRISTOL-MYERS SQUIBB COMPANY-15979123

PATIENT
  Age: 65 Year
  Sex: Female
  Weight: 42 kg

DRUGS (8)
  1. ZANTAC [Concomitant]
     Indication: PREMEDICATION
     Dosage: INJECTION
     Dates: start: 20110207, end: 20110628
  2. RAMELTEON [Concomitant]
     Indication: PROPHYLAXIS OF NAUSEA AND VOMITING
     Dosage: INJECTION
     Dates: start: 20110207, end: 20110628
  3. CIMETIDINE [Concomitant]
     Dosage: TABLET
     Dates: start: 20110621
  4. DEXAMETHASONE SODIUM PHOSPHATE [Concomitant]
     Indication: PREMEDICATION
     Dosage: INJECTION
     Dates: start: 20110207, end: 20110628
  5. LOPERAMIDE HCL [Concomitant]
     Indication: DIARRHOEA
     Dosage: CAPSULE
     Dates: start: 20110219
  6. PACLITAXEL [Suspect]
     Indication: BREAST CANCER
     Dosage: 108 MG DAY 1,8 AND 15 OF A 28 DAY CYCLE;106MG DAY 1,8 AND 15 OF A 28 DAY CYCLE 02MAY-28JUN11
     Route: 042
     Dates: start: 20110207, end: 20110628
  7. PRIMPERAN TAB [Concomitant]
     Indication: NAUSEA
     Dosage: TABLET
     Dates: start: 20110222
  8. POLARAMINE [Concomitant]
     Indication: PREMEDICATION
     Dosage: INJECTION
     Dates: start: 20110207, end: 20110628

REACTIONS (1)
  - SIGNET-RING CELL CARCINOMA [None]
